FAERS Safety Report 24427273 (Version 3)
Quarter: 2024Q4

REPORT INFORMATION
  Report Type: Spontaneous
  Country: US (occurrence: US)
  Receive Date: 20241011
  Receipt Date: 20241110
  Transmission Date: 20250115
  Serious: Yes (Other)
  Sender: SANOFI AVENTIS
  Company Number: US-SA-2024SA292506

PATIENT
  Age: 78 Year
  Sex: Male

DRUGS (1)
  1. CERDELGA [Suspect]
     Active Substance: ELIGLUSTAT
     Indication: Gaucher^s disease
     Dosage: 84 MG, BID
     Route: 048
     Dates: start: 202409

REACTIONS (4)
  - Syncope [Unknown]
  - Nausea [Recovering/Resolving]
  - Fatigue [Unknown]
  - Cataract operation [Unknown]

NARRATIVE: CASE EVENT DATE: 20240101
